FAERS Safety Report 16200275 (Version 2)
Quarter: 2020Q3

REPORT INFORMATION
  Report Type: Spontaneous
  Country: GR (occurrence: GR)
  Receive Date: 20190416
  Receipt Date: 20200717
  Transmission Date: 20201102
  Serious: Yes (Hospitalization, Other)
  Sender: FDA-Public Use
  Company Number: GR-SUN PHARMACEUTICAL INDUSTRIES LTD-2019R1-205336

PATIENT
  Age: 20 Year
  Sex: Female
  Weight: 62 kg

DRUGS (1)
  1. ISOTRETINOIN. [Suspect]
     Active Substance: ISOTRETINOIN
     Indication: ACNE
     Dosage: 60 MILLIGRAM, DAILY, (3 TABLETS OF 20 MG TAKEN BID)
     Route: 065

REACTIONS (2)
  - Type IV hypersensitivity reaction [Recovered/Resolved]
  - Meningitis aseptic [Recovered/Resolved]
